FAERS Safety Report 4658676-X (Version None)
Quarter: 2005Q2

REPORT INFORMATION
  Report Type: 
  Country: None (occurrence: None)
  Receive Date: 20050510
  Receipt Date: 20050510
  Transmission Date: 20051028
  Serious: Yes (Other)
  Sender: FDA-Public Use
  Company Number: None

PATIENT
  Age: 68 Year
  Sex: Male
  Weight: 65.7716 kg

DRUGS (7)
  1. RISPERDAL [Suspect]
     Indication: SCHIZOPHRENIA
     Dosage: 1 MG    BID   ORAL
     Route: 048
     Dates: start: 20050210, end: 20050211
  2. AMANTADINE HCL [Concomitant]
  3. TAMSULOSIN [Concomitant]
  4. TRAZODONE [Concomitant]
  5. ASPIRIN [Concomitant]
  6. HYDROCORTISONE SUPPOSITORIES [Concomitant]
  7. ATENOLOL [Concomitant]

REACTIONS (1)
  - GYNAECOMASTIA [None]
